FAERS Safety Report 21464714 (Version 1)
Quarter: 2022Q4

REPORT INFORMATION
  Report Type: Report from Study
  Country: US (occurrence: US)
  Receive Date: 20221017
  Receipt Date: 20221017
  Transmission Date: 20230112
  Serious: Yes (Hospitalization, Other)
  Sender: FDA-Public Use
  Company Number: US-BoehringerIngelheim-2020-BI-026260

PATIENT
  Age: 76 Year
  Sex: Female

DRUGS (3)
  1. OFEV [Suspect]
     Active Substance: NINTEDANIB
     Indication: Idiopathic pulmonary fibrosis
     Route: 048
     Dates: start: 20200507
  2. OFEV [Suspect]
     Active Substance: NINTEDANIB
     Route: 048
  3. OFEV [Suspect]
     Active Substance: NINTEDANIB
     Route: 048
     Dates: end: 20220411

REACTIONS (27)
  - Cerebrovascular accident [Unknown]
  - Lung neoplasm malignant [Unknown]
  - Idiopathic pulmonary fibrosis [Unknown]
  - Transient ischaemic attack [Unknown]
  - Loss of consciousness [Unknown]
  - Chills [Unknown]
  - Hyperhidrosis [Unknown]
  - Pain [Unknown]
  - Dizziness [Unknown]
  - Urinary tract infection bacterial [Unknown]
  - Decreased appetite [Unknown]
  - Weight decreased [Unknown]
  - Diarrhoea [Not Recovered/Not Resolved]
  - COVID-19 [Recovering/Resolving]
  - Asthenia [Unknown]
  - Post procedural complication [Unknown]
  - Gastric disorder [Unknown]
  - Chest discomfort [Unknown]
  - Dysphonia [Unknown]
  - Heart rate abnormal [Unknown]
  - Bone loss [Unknown]
  - Lung disorder [Unknown]
  - Onychoclasis [Unknown]
  - Clostridium difficile infection [Recovering/Resolving]
  - Headache [Not Recovered/Not Resolved]
  - Haematochezia [Recovered/Resolved]
  - Rectal haemorrhage [Unknown]

NARRATIVE: CASE EVENT DATE: 20200701
